FAERS Safety Report 11825190 (Version 1)
Quarter: 2015Q4

REPORT INFORMATION
  Report Type: Report from Study
  Country: US (occurrence: US)
  Receive Date: 20151211
  Receipt Date: 20151211
  Transmission Date: 20160305
  Serious: No
  Sender: FDA-Public Use
  Company Number: US-AMGEN-USASP2015128394

PATIENT
  Age: 34 Year
  Sex: Female

DRUGS (1)
  1. ENBREL [Suspect]
     Active Substance: ETANERCEPT
     Indication: PSORIASIS
     Dosage: UNK UNK, TWICE A WEEK MON AND THURS SOMETIMES WED AND SUNDAY
     Route: 065
     Dates: start: 2015

REACTIONS (3)
  - Injection site discolouration [Unknown]
  - Rash [Unknown]
  - Injection site rash [Unknown]

NARRATIVE: CASE EVENT DATE: 2015
